FAERS Safety Report 12831837 (Version 2)
Quarter: 2016Q4

REPORT INFORMATION
  Report Type: Report from Study
  Country: US (occurrence: US)
  Receive Date: 20161010
  Receipt Date: 20161018
  Transmission Date: 20170207
  Serious: Yes (Other)
  Sender: FDA-Public Use
  Company Number: PHEH2016US025660

PATIENT
  Age: 65 Year
  Sex: Female

DRUGS (1)
  1. COSENTYX [Suspect]
     Active Substance: SECUKINUMAB
     Indication: PSORIASIS
     Dosage: 150 MG, ONCE A MONTH
     Route: 058

REACTIONS (3)
  - Oropharyngeal pain [Unknown]
  - Oral candidiasis [Not Recovered/Not Resolved]
  - Oropharyngeal blistering [Unknown]

NARRATIVE: CASE EVENT DATE: 20160919
